FAERS Safety Report 17774546 (Version 2)
Quarter: 2020Q2

REPORT INFORMATION
  Report Type: Spontaneous
  Country: PT (occurrence: PT)
  Receive Date: 20200513
  Receipt Date: 20200602
  Transmission Date: 20200714
  Serious: No
  Sender: FDA-Public Use
  Company Number: NVSC2020PT129677

PATIENT
  Age: 53 Year
  Sex: Male

DRUGS (2)
  1. COSENTYX [Suspect]
     Active Substance: SECUKINUMAB
     Indication: SPONDYLOARTHROPATHY
     Dosage: 300 MG, QMO
     Route: 065
     Dates: start: 201903
  2. SALAZOPYRINE [Concomitant]
     Active Substance: SULFASALAZINE
     Indication: ARTHRITIS
     Route: 065

REACTIONS (4)
  - Product use in unapproved indication [Unknown]
  - Raynaud^s phenomenon [Recovered/Resolved]
  - Double stranded DNA antibody positive [Unknown]
  - Antinuclear antibody positive [Unknown]
